FAERS Safety Report 6339186-0 (Version None)
Quarter: 2009Q3

REPORT INFORMATION
  Report Type: 
  Country: None (occurrence: None)
  Receive Date: 20090903
  Receipt Date: 20090827
  Transmission Date: 20100115
  Serious: Yes (Hospitalization)
  Sender: FDA-Public Use
  Company Number: DE-AVENTIS-200911547DE

PATIENT
  Age: 39 Year
  Sex: Female

DRUGS (1)
  1. TELFAST                            /01314201/ [Suspect]
     Route: 048
     Dates: start: 20090301

REACTIONS (2)
  - ABORTION SPONTANEOUS [None]
  - DRUG EXPOSURE DURING PREGNANCY [None]
